FAERS Safety Report 14778612 (Version 1)
Quarter: 2018Q2

REPORT INFORMATION
  Report Type: Spontaneous
  Country: US (occurrence: PE)
  Receive Date: 20180419
  Receipt Date: 20180419
  Transmission Date: 20180711
  Serious: Yes (Death)
  Sender: FDA-Public Use
  Company Number: US-SUNOVION-2018SUN001506

PATIENT
  Age: 85 Year
  Sex: Female

DRUGS (1)
  1. INDACATEROL AND GLYCOPYRROLATE [Suspect]
     Active Substance: GLYCOPYRROLATE\INDACATEROL MALEATE
     Indication: CHRONIC OBSTRUCTIVE PULMONARY DISEASE
     Dosage: 0.11/0.050 MG
     Route: 065
     Dates: start: 201712

REACTIONS (1)
  - Pleural neoplasm [Fatal]

NARRATIVE: CASE EVENT DATE: 20180125
